FAERS Safety Report 9472911 (Version 1)
Quarter: 2013Q3

REPORT INFORMATION
  Report Type: Spontaneous
  Country: US (occurrence: US)
  Receive Date: 20130823
  Receipt Date: 20130823
  Transmission Date: 20140515
  Serious: No
  Sender: FDA-Public Use
  Company Number: US-BRISTOL-MYERS SQUIBB COMPANY-17218355

PATIENT
  Age: 78 Year
  Sex: Male

DRUGS (10)
  1. SPRYCEL (CML) TABS 100 MG [Suspect]
     Indication: CHRONIC MYELOID LEUKAEMIA
     Dosage: INTERRUPTED ON 14DEC2012
     Route: 048
     Dates: start: 20121116
  2. BUMETANIDE [Concomitant]
  3. CALCIUM [Concomitant]
  4. CENTRUM SILVER [Concomitant]
  5. IMODIUM [Concomitant]
  6. LOSARTAN [Concomitant]
  7. TRICOR [Concomitant]
  8. VITAMIN C [Concomitant]
  9. ZOLPIDEM [Concomitant]
  10. REMERON [Concomitant]

REACTIONS (1)
  - Haemoglobin decreased [Unknown]
